FAERS Safety Report 7921084-X (Version None)
Quarter: 2011Q4

REPORT INFORMATION
  Report Type: 
  Country: None (occurrence: None)
  Receive Date: 20111117
  Receipt Date: 20111108
  Transmission Date: 20120403
  Serious: Yes (Life-Threatening, Hospitalization)
  Sender: FDA-Public Use
  Company Number: US-MERCK-1111USA01183

PATIENT
  Age: 8 Year
  Sex: Female

DRUGS (6)
  1. SINGULAIR [Suspect]
     Indication: ASTHMA
     Route: 048
     Dates: start: 20110101
  2. FAMOTIDINE [Concomitant]
     Route: 065
  3. HYDROXYZINE [Concomitant]
     Indication: HYPERSENSITIVITY
     Route: 065
  4. ZYRTEC [Concomitant]
     Route: 065
  5. SINGULAIR [Suspect]
     Indication: RHINITIS ALLERGIC
     Route: 048
     Dates: start: 20110101
  6. LEVOTHYROXINE SODIUM [Concomitant]
     Route: 065

REACTIONS (2)
  - THROMBOCYTOPENIA [None]
  - HEPATIC ENZYME INCREASED [None]
